FAERS Safety Report 15800376 (Version 3)
Quarter: 2019Q1

REPORT INFORMATION
  Report Type: Spontaneous
  Country: DE (occurrence: DE)
  Receive Date: 20190108
  Receipt Date: 20190118
  Transmission Date: 20190417
  Serious: Yes (Life-Threatening, Other)
  Sender: FDA-Public Use
  Company Number: PHHY2019DE000859

PATIENT
  Age: 78 Year
  Weight: 93 kg

DRUGS (1)
  1. METHOTREXATE. [Suspect]
     Active Substance: METHOTREXATE
     Indication: PSORIASIS
     Dosage: 7.5 MG (LOW DOSE), QW
     Route: 065

REACTIONS (9)
  - Acute kidney injury [Unknown]
  - White blood cell count decreased [Unknown]
  - Thrombocytopenia [Unknown]
  - Nephropathy [Unknown]
  - Psoriasis [Unknown]
  - Neutropenia [Unknown]
  - Hypertensive nephropathy [Unknown]
  - Toxicity to various agents [Unknown]
  - Bone marrow failure [Unknown]
